FAERS Safety Report 14755920 (Version 1)
Quarter: 2018Q2

REPORT INFORMATION
  Report Type: Spontaneous
  Country: US (occurrence: US)
  Receive Date: 20180413
  Receipt Date: 20180413
  Transmission Date: 20180711
  Serious: Yes (Other)
  Sender: FDA-Public Use
  Company Number: US-PFIZER INC-2018150808

PATIENT
  Age: 55 Year
  Sex: Female

DRUGS (1)
  1. IBRANCE [Suspect]
     Active Substance: PALBOCICLIB
     Indication: BREAST CANCER FEMALE
     Dosage: 125 MG, CYCLIC, [DAYS 1-21 OF 28 DAY CYCLE]
     Route: 048
     Dates: start: 201803

REACTIONS (3)
  - Flatulence [Unknown]
  - Diverticulitis [Unknown]
  - Abdominal pain upper [Unknown]
